FAERS Safety Report 24748672 (Version 1)
Quarter: 2024Q4

REPORT INFORMATION
  Report Type: Spontaneous
  Country: US (occurrence: None)
  Receive Date: 20241217
  Receipt Date: 20241217
  Transmission Date: 20250115
  Serious: Yes (Other)
  Sender: Public
  Company Number: None

PATIENT
  Age: 63 Year
  Sex: Male
  Weight: 104.85 kg

DRUGS (1)
  1. POMALYST [Suspect]
     Active Substance: POMALIDOMIDE
     Dosage: OTHER FREQUENCY : 1 DAILY 21 ON 7 OF;?
     Dates: start: 20241126

REACTIONS (1)
  - Neutropenia [None]

NARRATIVE: CASE EVENT DATE: 20241217
